FAERS Safety Report 7506512-6 (Version None)
Quarter: 2011Q2

REPORT INFORMATION
  Report Type: 
  Country: None (occurrence: None)
  Receive Date: 20110526
  Receipt Date: 20110512
  Transmission Date: 20111010
  Serious: Yes (Other)
  Sender: FDA-Public Use
  Company Number: FR-JNJFOC-20110308659

PATIENT
  Age: 18 Year
  Sex: Female
  Weight: 64 kg

DRUGS (5)
  1. REMICADE [Suspect]
     Route: 042
     Dates: start: 20100623
  2. REMICADE [Suspect]
     Indication: PYODERMA GANGRENOSUM
     Route: 042
     Dates: start: 20100805
  3. REMICADE [Suspect]
     Route: 042
     Dates: start: 20101007
  4. REMICADE [Suspect]
     Route: 042
     Dates: start: 20100528
  5. REMICADE [Suspect]
     Dosage: FIFTH INFUSION
     Route: 042
     Dates: start: 20101209

REACTIONS (3)
  - MYALGIA [None]
  - LUPUS-LIKE SYNDROME [None]
  - ARTHRALGIA [None]
